FAERS Safety Report 5975986-4 (Version None)
Quarter: 2008Q4

REPORT INFORMATION
  Report Type: 
  Country: None (occurrence: None)
  Receive Date: 20081202
  Receipt Date: 20081121
  Transmission Date: 20090506
  Serious: Yes (Other)
  Sender: FDA-Public Use
  Company Number: GB-JNJFOC-20080905336

PATIENT
  Sex: Male

DRUGS (9)
  1. REMICADE [Suspect]
     Route: 042
  2. REMICADE [Suspect]
     Indication: CROHN'S DISEASE
     Route: 042
  3. HYDROCORTISONE [Concomitant]
     Route: 042
  4. HYDROCORTISONE [Concomitant]
     Route: 042
  5. PENTASA [Concomitant]
  6. FERROUS SULFATE TAB [Concomitant]
  7. CALCICHEW D3 FORTE [Concomitant]
  8. VITAMIN B-12 [Concomitant]
     Route: 050
  9. ELEMENTAL 028 EXTRA [Concomitant]

REACTIONS (1)
  - HERPES ZOSTER [None]
